FAERS Safety Report 7793013-3 (Version None)
Quarter: 2011Q4

REPORT INFORMATION
  Report Type: 
  Country: None (occurrence: None)
  Receive Date: 20111003
  Receipt Date: 20110921
  Transmission Date: 20120403
  Serious: Yes (Other)
  Sender: FDA-Public Use
  Company Number: US-NOVOPROD-335714

PATIENT
  Sex: Female
  Weight: 158.2 kg

DRUGS (6)
  1. LIRAGLUTIDE FLEXPEN [Suspect]
     Dosage: 0.6 MG, QD
     Route: 058
     Dates: start: 20110918
  2. FLUTICASONE PROPIONATE [Concomitant]
     Indication: BRONCHIAL HYPERREACTIVITY
     Dosage: 100 UG, QD
     Route: 055
     Dates: start: 20100601
  3. LIRAGLUTIDE FLEXPEN [Suspect]
     Indication: OBESITY
     Dosage: 3.0 MG, QD
     Route: 058
     Dates: start: 20110628, end: 20110918
  4. GLIPIZIDE [Concomitant]
     Indication: TYPE 2 DIABETES MELLITUS
     Dosage: 2.5 MG, QD
     Route: 048
     Dates: start: 20110707
  5. METFORMIN HCL [Concomitant]
     Indication: TYPE 2 DIABETES MELLITUS
     Dosage: 2000 MG, QD
     Route: 048
     Dates: start: 20000501
  6. QVAR 40 [Concomitant]
     Indication: BRONCHIAL HYPERREACTIVITY
     Dosage: 320 MG, QD
     Route: 055
     Dates: start: 20100601

REACTIONS (3)
  - INJECTION SITE PRURITUS [None]
  - PRURITUS GENERALISED [None]
  - INJECTION SITE ERYTHEMA [None]
